FAERS Safety Report 7437708-X (Version None)
Quarter: 2011Q2

REPORT INFORMATION
  Report Type: 
  Country: None (occurrence: None)
  Receive Date: 20110426
  Receipt Date: 20110418
  Transmission Date: 20111010
  Serious: Yes (Death, Hospitalization)
  Sender: FDA-Public Use
  Company Number: TN-SANOFI-AVENTIS-2011SA024159

PATIENT
  Age: 70 Year
  Sex: Male

DRUGS (6)
  1. LASIX [Concomitant]
     Route: 048
     Dates: end: 20110106
  2. FAMOTIDINE [Concomitant]
     Route: 048
     Dates: end: 20110106
  3. CAPTOPRIL [Concomitant]
     Route: 048
     Dates: end: 20110106
  4. PLAVIX [Suspect]
     Route: 048
     Dates: start: 20100521, end: 20110106
  5. PLAVIX [Suspect]
     Indication: STENT PLACEMENT
     Route: 048
     Dates: start: 20100521, end: 20110106
  6. KARDEGIC [Concomitant]
     Route: 048
     Dates: end: 20110106

REACTIONS (1)
  - ERYSIPELAS [None]
